FAERS Safety Report 10416315 (Version 1)
Quarter: 2014Q3

REPORT INFORMATION
  Report Type: Spontaneous
  Country: US (occurrence: None)
  Receive Date: 20140827
  Receipt Date: 20140827
  Transmission Date: 20150326
  Serious: Yes (Hospitalization)
  Sender: FDA-Public Use
  Company Number: None

PATIENT
  Age: 58 Year
  Sex: Male
  Weight: 102.51 kg

DRUGS (1)
  1. ROPINIROLE. [Suspect]
     Active Substance: ROPINIROLE
     Indication: RESTLESS LEGS SYNDROME
     Dosage: 1 PILL AT BEDTIME TAKEN BY MOUTH
     Route: 048

REACTIONS (14)
  - Musculoskeletal pain [None]
  - Fear [None]
  - Flushing [None]
  - Tremor [None]
  - Unresponsive to stimuli [None]
  - Fatigue [None]
  - Movement disorder [None]
  - Nausea [None]
  - Dysgeusia [None]
  - Convulsion [None]
  - Loss of consciousness [None]
  - Dysstasia [None]
  - Frustration [None]
  - Abasia [None]

NARRATIVE: CASE EVENT DATE: 20140116
